FAERS Safety Report 12298241 (Version 1)
Quarter: 2016Q2

REPORT INFORMATION
  Report Type: Spontaneous
  Country: US (occurrence: US)
  Receive Date: 20160423
  Receipt Date: 20160423
  Transmission Date: 20160815
  Serious: No
  Sender: FDA-Public Use
  Company Number: PHEH2016US009741

PATIENT
  Sex: Female

DRUGS (1)
  1. FARYDAK [Suspect]
     Active Substance: PANOBINOSTAT
     Indication: PLASMA CELL MYELOMA
     Dosage: 20 MG, QW3 (DAY 1, 3 AND 5 FOR TWO WEEKS AND OFF FOR A WEEK)
     Route: 048
     Dates: start: 20160404

REACTIONS (1)
  - Vomiting [Recovered/Resolved]
